FAERS Safety Report 17851271 (Version 1)
Quarter: 2020Q2

REPORT INFORMATION
  Report Type: Report from Study
  Country: PK (occurrence: PK)
  Receive Date: 20200602
  Receipt Date: 20200602
  Transmission Date: 20200714
  Serious: Yes (Other)
  Sender: FDA-Public Use
  Company Number: PHHY2017PK100914

PATIENT
  Sex: Male
  Weight: 90 kg

DRUGS (4)
  1. GLIVEC [Suspect]
     Active Substance: IMATINIB MESYLATE
     Indication: CHRONIC MYELOID LEUKAEMIA
     Dosage: 4 DF, QD
     Route: 048
     Dates: start: 20130129
  2. GLIVEC [Suspect]
     Active Substance: IMATINIB MESYLATE
     Dosage: 3 DF, BID
     Route: 048
     Dates: start: 20170706, end: 20190319
  3. GLIVEC [Suspect]
     Active Substance: IMATINIB MESYLATE
     Dosage: 100 MG(4XBD)
     Route: 048
     Dates: start: 20190319, end: 20200505
  4. GLIVEC [Suspect]
     Active Substance: IMATINIB MESYLATE
     Dosage: 4 DF, BID
     Route: 048
     Dates: start: 20190320

REACTIONS (5)
  - Haemorrhage [Unknown]
  - Drug intolerance [Unknown]
  - Asthenia [Unknown]
  - Haemoglobin decreased [Unknown]
  - Cytogenetic analysis abnormal [Not Recovered/Not Resolved]
